FAERS Safety Report 22061425 (Version 1)
Quarter: 2023Q1

REPORT INFORMATION
  Report Type: Spontaneous
  Country: JP (occurrence: JP)
  Receive Date: 20230304
  Receipt Date: 20230304
  Transmission Date: 20230417
  Serious: Yes (Other)
  Sender: FDA-Public Use
  Company Number: JP-JNJFOC-20220960532

PATIENT
  Age: 16 Year
  Sex: Male

DRUGS (5)
  1. IMBRUVICA [Suspect]
     Active Substance: IBRUTINIB
     Indication: Graft versus host disease
     Route: 048
     Dates: start: 20220321, end: 20220829
  2. PREDNISOLONE [Concomitant]
     Active Substance: PREDNISOLONE
     Indication: Graft versus host disease
     Dosage: DOSE UNKNOWN
     Route: 065
  3. PREDNISOLONE [Concomitant]
     Active Substance: PREDNISOLONE
     Indication: Graft versus host disease
     Dosage: DOSE UNKNOWN, GRADUALLY DECREASED
     Route: 065
  4. PREDNISOLONE [Concomitant]
     Active Substance: PREDNISOLONE
     Indication: Graft versus host disease
     Route: 065
  5. MYCOPHENOLATE MOFETIL [Concomitant]
     Active Substance: MYCOPHENOLATE MOFETIL
     Indication: Graft versus host disease
     Dosage: DOSE UNKNOWN
     Route: 065
     Dates: end: 2022

REACTIONS (2)
  - Bronchopulmonary aspergillosis [Recovering/Resolving]
  - Epstein-Barr virus associated lymphoproliferative disorder [Unknown]

NARRATIVE: CASE EVENT DATE: 20220501
